FAERS Safety Report 13212708 (Version 5)
Quarter: 2019Q2

REPORT INFORMATION
  Report Type: Spontaneous
  Country: US (occurrence: US)
  Receive Date: 20170210
  Receipt Date: 20190503
  Transmission Date: 20190711
  Serious: Yes (Hospitalization, Other)
  Sender: FDA-Public Use
  Company Number: US-PFIZER INC-2017052394

PATIENT
  Age: 64 Year
  Sex: Male

DRUGS (2)
  1. XELJANZ [Suspect]
     Active Substance: TOFACITINIB CITRATE
     Dosage: 5 MG, 2X/DAY
  2. XELJANZ [Suspect]
     Active Substance: TOFACITINIB CITRATE
     Dosage: 5 MG, UNK
     Dates: end: 201603

REACTIONS (14)
  - Joint swelling [Unknown]
  - Spinal osteoarthritis [Unknown]
  - Tenderness [Unknown]
  - Gait disturbance [Unknown]
  - Ulcerative keratitis [Unknown]
  - Joint effusion [Unknown]
  - Joint dislocation [Unknown]
  - Back pain [Unknown]
  - Arthrodesis [Unknown]
  - Hand deformity [Unknown]
  - Thrombosis [Unknown]
  - Arthralgia [Unknown]
  - Synovitis [Unknown]
  - Osteoarthritis [Unknown]
